FAERS Safety Report 8895865 (Version 2)
Quarter: 2013Q1

REPORT INFORMATION
  Report Type: Spontaneous
  Country: US (occurrence: US)
  Receive Date: 20121107
  Receipt Date: 20130225
  Transmission Date: 20140127
  Serious: No
  Sender: FDA-Public Use
  Company Number: US-ASTRAZENECA-2012SE76543

PATIENT
  Age: 41 Year
  Sex: Female

DRUGS (8)
  1. CAPRELSA [Suspect]
     Indication: THYROID CANCER
     Route: 048
     Dates: start: 20120922
  2. TOPROL XL [Suspect]
     Route: 048
  3. EFFEXOR XR [Concomitant]
  4. MONOCYCLINE [Concomitant]
  5. PREVACID [Concomitant]
  6. SEASONIQUE [Concomitant]
  7. SYNTHROID [Concomitant]
  8. LEXAPO [Concomitant]

REACTIONS (7)
  - Rash pruritic [Unknown]
  - Blister [Unknown]
  - Oropharyngeal pain [Unknown]
  - Fatigue [Unknown]
  - Feeling abnormal [Unknown]
  - Diarrhoea [Unknown]
  - Nausea [Unknown]
